FAERS Safety Report 7395998-6 (Version None)
Quarter: 2011Q2

REPORT INFORMATION
  Report Type: 
  Country: None (occurrence: None)
  Receive Date: 20110406
  Receipt Date: 20110325
  Transmission Date: 20111010
  Serious: Yes (Other)
  Sender: FDA-Public Use
  Company Number: ES-RANBAXY-2011R1-43412

PATIENT
  Age: 45 Year
  Sex: Female

DRUGS (4)
  1. DEXCHLORPHENIRAMINE MALEATE [Suspect]
     Indication: CONJUNCTIVITIS ALLERGIC
  2. EBSATEL FORTE [Suspect]
     Indication: CONJUNCTIVITIS ALLERGIC
     Route: 048
  3. FEXOFENADINE [Suspect]
     Indication: CONJUNCTIVITIS ALLERGIC
     Route: 048
  4. LORATADINE [Suspect]
     Indication: CONJUNCTIVITIS ALLERGIC
     Route: 048

REACTIONS (1)
  - URTICARIA [None]
